FAERS Safety Report 11840783 (Version 1)
Quarter: 2015Q4

REPORT INFORMATION
  Report Type: Spontaneous
  Country: US (occurrence: US)
  Receive Date: 20151216
  Receipt Date: 20151216
  Transmission Date: 20160305
  Serious: Yes (Other)
  Sender: FDA-Public Use
  Company Number: US-BAXTER-2015BAX066877

PATIENT
  Age: 11 Year
  Sex: Male

DRUGS (2)
  1. METRONIDAZOLE INJECTION, USP [Suspect]
     Active Substance: METRONIDAZOLE
     Indication: PRODUCT USED FOR UNKNOWN INDICATION
     Route: 065
  2. SODIUM CITRATE AND CITRIC ACID [Suspect]
     Active Substance: CITRIC ACID MONOHYDRATE\SODIUM CITRATE
     Indication: PRODUCT USED FOR UNKNOWN INDICATION
     Route: 065

REACTIONS (1)
  - Dermatitis [Unknown]
